FAERS Safety Report 25666258 (Version 1)
Quarter: 2025Q3

REPORT INFORMATION
  Report Type: Spontaneous
  Country: EU (occurrence: EU)
  Receive Date: 20250811
  Receipt Date: 20250811
  Transmission Date: 20251020
  Serious: Yes (Death, Other)
  Sender: TAKEDA
  Company Number: None

PATIENT
  Age: 7 Year
  Sex: Female
  Weight: 25.8 kg

DRUGS (1)
  1. ADZYNMA [Suspect]
     Active Substance: ADAMTS13, RECOMBINANT-KRHN
     Indication: Congenital thrombotic thrombocytopenic purpura
     Dosage: 1000 INTERNATIONAL UNIT, Q2WEEKS
     Dates: start: 20240926, end: 20250719

REACTIONS (3)
  - Therapy non-responder [Fatal]
  - ADAMTS13 activity decreased [Fatal]
  - Thrombotic microangiopathy [Fatal]
